FAERS Safety Report 5015427-7 (Version None)
Quarter: 2006Q2

REPORT INFORMATION
  Report Type: 
  Country: None (occurrence: None)
  Receive Date: 20060601
  Receipt Date: 20060522
  Transmission Date: 20061013
  Serious: Yes (Other)
  Sender: FDA-Public Use
  Company Number: 2006UW09939

PATIENT
  Age: 82 Year
  Sex: Male
  Weight: 77.1 kg

DRUGS (6)
  1. CRESTOR [Suspect]
     Indication: BLOOD CHOLESTEROL INCREASED
     Route: 048
  2. PREVACID [Concomitant]
  3. LISINOPRIL [Concomitant]
     Route: 048
  4. HYDROCHLOROTHIAZIDE [Concomitant]
  5. METOPROLOL [Concomitant]
     Route: 048
  6. PLETAL [Concomitant]

REACTIONS (3)
  - BLINDNESS [None]
  - HEADACHE [None]
  - SPEECH DISORDER [None]
